FAERS Safety Report 24566755 (Version 2)
Quarter: 2025Q1

REPORT INFORMATION
  Report Type: Spontaneous
  Country: JP (occurrence: JP)
  Receive Date: 20241030
  Receipt Date: 20250206
  Transmission Date: 20250409
  Serious: Yes (Death, Life-Threatening)
  Sender: BAYER HEALTHCARE PHARMACEUTICALS INC.
  Company Number: JP-BAYER-2024A154851

PATIENT
  Age: 80 Year
  Sex: Male

DRUGS (1)
  1. XOFIGO [Suspect]
     Active Substance: RADIUM RA-223 DICHLORIDE
     Indication: Prostate cancer
     Dates: start: 20240822, end: 20240924

REACTIONS (6)
  - Anaemia [Fatal]
  - Platelet count decreased [Fatal]
  - Respiratory arrest [None]
  - Cardio-respiratory arrest [Fatal]
  - Hiccups [Not Recovered/Not Resolved]
  - Decreased appetite [None]

NARRATIVE: CASE EVENT DATE: 20241015
